FAERS Safety Report 20144198 (Version 3)
Quarter: 2022Q2

REPORT INFORMATION
  Report Type: Spontaneous
  Country: US (occurrence: US)
  Receive Date: 20211203
  Receipt Date: 20220613
  Transmission Date: 20220721
  Serious: No
  Sender: FDA-Public Use
  Company Number: US-BRISTOL-MYERS SQUIBB COMPANY-BMS-2021-129678

PATIENT
  Age: 15 Year
  Sex: Female

DRUGS (2)
  1. ORENCIA [Suspect]
     Active Substance: ABATACEPT
     Indication: Psoriatic arthropathy
     Dosage: 87.5MG/0.7
     Route: 065
     Dates: start: 202005
  2. ORENCIA [Suspect]
     Active Substance: ABATACEPT
     Dosage: ACB8311- EXPIRY DATE: 30-NOV-2023
     Route: 058
     Dates: start: 20200522

REACTIONS (4)
  - Drug ineffective [Unknown]
  - Tic [Unknown]
  - Condition aggravated [Unknown]
  - Burning sensation [Unknown]
